FAERS Safety Report 5364589-0 (Version None)
Quarter: 2007Q2

REPORT INFORMATION
  Report Type: 
  Country: None (occurrence: None)
  Receive Date: 20070530
  Receipt Date: 20070120
  Transmission Date: 20071010
  Serious: No
  Sender: FDA-Public Use
  Company Number: 2007PV028707

PATIENT
  Age: 59 Year
  Sex: Female
  Weight: 120.6568 kg

DRUGS (5)
  1. BYETTA [Suspect]
     Indication: DIABETES MELLITUS NON-INSULIN-DEPENDENT
     Dosage: 10 MCG;BID;SC   5 MCG;BID;SC
     Route: 058
     Dates: start: 20060101, end: 20060101
  2. BYETTA [Suspect]
     Indication: DIABETES MELLITUS NON-INSULIN-DEPENDENT
     Dosage: 10 MCG;BID;SC   5 MCG;BID;SC
     Route: 058
     Dates: start: 20060101
  3. INDOCIN [Suspect]
     Indication: BACK PAIN
     Dosage: 75 MG;QOD;PO   75 MG;BID;PO
     Route: 048
     Dates: end: 20060101
  4. INDOCIN [Suspect]
     Indication: BACK PAIN
     Dosage: 75 MG;QOD;PO   75 MG;BID;PO
     Route: 048
     Dates: start: 20060101
  5. METFORMIN HCL [Concomitant]

REACTIONS (7)
  - ABDOMINAL DISTENSION [None]
  - ANOREXIA [None]
  - BACK PAIN [None]
  - INTERVERTEBRAL DISC COMPRESSION [None]
  - NAUSEA [None]
  - SWELLING [None]
  - WEIGHT DECREASED [None]
